FAERS Safety Report 20831712 (Version 1)
Quarter: 2022Q2

REPORT INFORMATION
  Report Type: Report from Study
  Country: US (occurrence: None)
  Receive Date: 20220516
  Receipt Date: 20220516
  Transmission Date: 20220721
  Serious: Yes (Other)
  Sender: FDA-Public Use
  Company Number: US-ROCHE-3093666

PATIENT
  Age: 54 Year
  Sex: Female

DRUGS (4)
  1. BEVACIZUMAB [Suspect]
     Active Substance: BEVACIZUMAB
     Indication: Ovarian epithelial cancer
     Dosage: OVER30-90 MIN ON DAY 1 OF CYCLE 2??LAST ADMINISTRATION OF BEVACIZUMAB: 08/NOV/2012 AND 16/FEB/2010
     Route: 042
     Dates: start: 20100107
  2. PACLITAXEL [Suspect]
     Active Substance: PACLITAXEL
     Indication: Ovarian epithelial cancer
     Dosage: OVER 3 HRS ON DAY 1
     Route: 042
     Dates: start: 20100107
  3. DOCETAXEL [Suspect]
     Active Substance: DOCETAXEL
     Indication: Ovarian epithelial cancer
     Dosage: OVER 3 HRS ON DAY 1
     Route: 042
     Dates: start: 20100107
  4. CARBOPLATIN [Suspect]
     Active Substance: CARBOPLATIN
     Indication: Ovarian epithelial cancer
     Dosage: AUC5?OVER60 MIN ON DAY 1
     Route: 042
     Dates: start: 20100107

REACTIONS (2)
  - Colitis [Recovered/Resolved]
  - Neutrophil count decreased [Recovered/Resolved]

NARRATIVE: CASE EVENT DATE: 20100302
